FAERS Safety Report 7495565-X (Version None)
Quarter: 2011Q2

REPORT INFORMATION
  Report Type: 
  Country: None (occurrence: None)
  Receive Date: 20110523
  Receipt Date: 20110510
  Transmission Date: 20111010
  Serious: Yes (Hospitalization)
  Sender: FDA-Public Use
  Company Number: CA-JNJFOC-20110208653

PATIENT
  Sex: Male

DRUGS (17)
  1. PREDNISONE [Suspect]
     Indication: PROSTATE CANCER METASTATIC
     Route: 048
     Dates: end: 20110101
  2. PREDNISONE [Suspect]
     Route: 048
     Dates: start: 20110215
  3. ASPIRIN [Concomitant]
     Route: 048
  4. OMEPRAZOLE [Concomitant]
     Route: 048
  5. BROMAZEPAM [Concomitant]
     Route: 048
  6. CHOLECALCIFEROL [Concomitant]
     Route: 048
  7. PREDNISONE [Suspect]
     Route: 048
     Dates: start: 20110101, end: 20110125
  8. MULTI-VITAMINS [Concomitant]
     Route: 048
  9. CALCIUM CARBONATE [Concomitant]
     Route: 048
  10. ABIRATERONE ACETATE [Suspect]
     Indication: PROSTATE CANCER METASTATIC
     Route: 048
     Dates: start: 20110126, end: 20110314
  11. ASCORBIC ACID [Concomitant]
     Route: 048
  12. ABIRATERONE ACETATE [Suspect]
     Route: 048
  13. PREDNISONE [Suspect]
     Route: 048
     Dates: start: 20110126, end: 20110215
  14. SELENIUM [Concomitant]
     Route: 048
  15. DICLOFENAC/MISOPROSTOL [Concomitant]
     Route: 048
  16. SIMVASTATIN [Concomitant]
     Route: 048
  17. ALLOPURINOL [Concomitant]
     Route: 048

REACTIONS (2)
  - PROSTATE CANCER [None]
  - ADRENAL INSUFFICIENCY [None]
